FAERS Safety Report 16806542 (Version 1)
Quarter: 2019Q3

REPORT INFORMATION
  Report Type: Spontaneous
  Country: US (occurrence: US)
  Receive Date: 20190913
  Receipt Date: 20190913
  Transmission Date: 20191005
  Serious: No
  Sender: FDA-Public Use
  Company Number: US-SA-2019SA255534

PATIENT
  Age: 16 Year
  Sex: Female

DRUGS (11)
  1. TRIAMCINOLONE ACETONIDE. [Concomitant]
     Active Substance: TRIAMCINOLONE ACETONIDE
  2. DOXYCYCLINE HYCLATE [DOXYCYCLINE] [Concomitant]
  3. CLINDAMYCIN [CLINDAMYCIN PHOSPHATE] [Concomitant]
  4. CYCLOBENZAPRINE. [Concomitant]
     Active Substance: CYCLOBENZAPRINE
  5. DUPIXENT [Suspect]
     Active Substance: DUPILUMAB
     Indication: DERMATITIS ATOPIC
     Dosage: 1 DF, QOW
     Route: 058
     Dates: start: 20180901
  6. MYCOPHENOLIC ACID. [Concomitant]
     Active Substance: MYCOPHENOLIC ACID
  7. PREDNISONE. [Concomitant]
     Active Substance: PREDNISONE
  8. AMOXICILLIN. [Concomitant]
     Active Substance: AMOXICILLIN
  9. MYCOPHENOLATE MOFETIL. [Concomitant]
     Active Substance: MYCOPHENOLATE MOFETIL
  10. CLOBETASOL PROPIONATE. [Concomitant]
     Active Substance: CLOBETASOL PROPIONATE
  11. MUPIROCIN. [Concomitant]
     Active Substance: MUPIROCIN

REACTIONS (6)
  - Skin weeping [Unknown]
  - Oral herpes [Unknown]
  - Dry skin [Unknown]
  - Skin fissures [Unknown]
  - Skin exfoliation [Unknown]
  - Skin haemorrhage [Unknown]

NARRATIVE: CASE EVENT DATE: 2019
